FAERS Safety Report 7155799-0 (Version None)
Quarter: 2010Q4

REPORT INFORMATION
  Report Type: 
  Country: None (occurrence: None)
  Receive Date: 20101123
  Receipt Date: 20100728
  Transmission Date: 20110411
  Serious: No
  Sender: FDA-Public Use
  Company Number: 008850

PATIENT
  Sex: Female
  Weight: 47 kg

DRUGS (6)
  1. CIMZIA [Suspect]
     Indication: CROHN'S DISEASE
     Dosage: (400 MG 1X/2 WEEK UBCUTANEOUS)
     Route: 058
     Dates: start: 20090101
  2. PENTASA [Concomitant]
  3. ENTOCORT EC [Concomitant]
  4. DEXLANSOPRAZOLE [Concomitant]
  5. LOTEPREDNOL [Concomitant]
  6. ANALPRAM HC [Concomitant]

REACTIONS (4)
  - FATIGUE [None]
  - HEADACHE [None]
  - INJECTION SITE DISCOLOURATION [None]
  - INJECTION SITE NODULE [None]
